FAERS Safety Report 6679426-1 (Version None)
Quarter: 2010Q2

REPORT INFORMATION
  Report Type: 
  Country: None (occurrence: None)
  Receive Date: 20100413
  Receipt Date: 20100401
  Transmission Date: 20101027
  Serious: Yes (Other)
  Sender: FDA-Public Use
  Company Number: US-SANOFI-AVENTIS-2010SA019811

PATIENT
  Sex: Male
  Weight: 165.56 kg

DRUGS (1)
  1. LANTUS [Suspect]
     Indication: TYPE 2 DIABETES MELLITUS
     Route: 058
     Dates: start: 20060101

REACTIONS (3)
  - COELIAC DISEASE [None]
  - HIGH DENSITY LIPOPROTEIN INCREASED [None]
  - WEIGHT INCREASED [None]
